FAERS Safety Report 18191821 (Version 1)
Quarter: 2020Q3

REPORT INFORMATION
  Report Type: Spontaneous
  Country: US (occurrence: US)
  Receive Date: 20200824
  Receipt Date: 20200824
  Transmission Date: 20201103
  Serious: Yes (Death)
  Sender: FDA-Public Use
  Company Number: None

PATIENT
  Age: 58 Year
  Sex: Male

DRUGS (2)
  1. TAGRISSO [Suspect]
     Active Substance: OSIMERTINIB
     Indication: LUNG NEOPLASM MALIGNANT
     Route: 048
     Dates: start: 20200513, end: 20200806
  2. TAGRISSO [Concomitant]
     Active Substance: OSIMERTINIB
     Dates: start: 20200513, end: 20200806

REACTIONS (1)
  - Death [None]

NARRATIVE: CASE EVENT DATE: 20200824
